FAERS Safety Report 25888410 (Version 1)
Quarter: 2025Q4

REPORT INFORMATION
  Report Type: Spontaneous
  Country: EU (occurrence: EU)
  Receive Date: 20251007
  Receipt Date: 20251007
  Transmission Date: 20260118
  Serious: Yes (Other)
  Sender: AUROBINDO
  Company Number: EU-AFSSAPS-ST2025001069

PATIENT
  Age: 10 Year
  Sex: Male

DRUGS (1)
  1. AMOXICILLIN [Suspect]
     Active Substance: AMOXICILLIN
     Indication: Bronchitis
     Dosage: 1 DOSAGE FORM
     Route: 048
     Dates: start: 2015, end: 2015

REACTIONS (4)
  - Laryngeal oedema [Recovered/Resolved]
  - Dyspnoea [Recovered/Resolved]
  - Dysphonia [Recovered/Resolved]
  - Urticaria [Recovered/Resolved]

NARRATIVE: CASE EVENT DATE: 20150101
